FAERS Safety Report 15707362 (Version 1)
Quarter: 2018Q4

REPORT INFORMATION
  Report Type: Spontaneous
  Country: FR (occurrence: FR)
  Receive Date: 20181211
  Receipt Date: 20181211
  Transmission Date: 20190205
  Serious: Yes (Other)
  Sender: FDA-Public Use
  Company Number: FR-SUN PHARMACEUTICAL INDUSTRIES LTD-2018RR-193107

PATIENT
  Age: 14 Year
  Sex: Female
  Weight: 59 kg

DRUGS (5)
  1. PARACETAMOL [Suspect]
     Active Substance: ACETAMINOPHEN
     Indication: SUICIDE ATTEMPT
     Dosage: IN TOTAL
     Route: 048
     Dates: start: 20170806, end: 20170806
  2. KETOPROFENE [Suspect]
     Active Substance: KETOPROFEN
     Dosage: IN TOTAL
     Route: 048
     Dates: start: 20170806, end: 20170806
  3. KETOPROFENE [Suspect]
     Active Substance: KETOPROFEN
     Indication: SUICIDE ATTEMPT
     Dosage: IN TOTAL
     Route: 048
     Dates: start: 20170806, end: 20170806
  4. PARACETAMOL [Suspect]
     Active Substance: ACETAMINOPHEN
     Dosage: IN TOTAL
     Route: 048
     Dates: start: 20170806, end: 20170806
  5. NAPROXENE [Suspect]
     Active Substance: NAPROXEN
     Indication: SUICIDE ATTEMPT
     Dosage: IN TOTAL
     Route: 048
     Dates: start: 20170806, end: 20170806

REACTIONS (4)
  - Acute kidney injury [Recovered/Resolved]
  - Back pain [Recovered/Resolved]
  - Vomiting [Recovered/Resolved]
  - Toxicity to various agents [Recovered/Resolved]

NARRATIVE: CASE EVENT DATE: 20170806
